FAERS Safety Report 5696126-5 (Version None)
Quarter: 2008Q2

REPORT INFORMATION
  Report Type: 
  Country: None (occurrence: None)
  Receive Date: 20080407
  Receipt Date: 20080326
  Transmission Date: 20081010
  Serious: Yes (Other)
  Sender: FDA-Public Use
  Company Number: JP-ROCHE-552034

PATIENT
  Sex: Male
  Weight: 65 kg

DRUGS (5)
  1. TAMIFLU [Suspect]
     Route: 048
     Dates: start: 20080226, end: 20080229
  2. IBUPROFEN [Concomitant]
     Dosage: DRUG REPORTED: BUBURONE
     Route: 048
     Dates: start: 20080226, end: 20080302
  3. TRANEXAMIC ACID [Concomitant]
     Dosage: DRUG REPORTED: PLETASMIN
     Route: 048
     Dates: start: 20080226, end: 20080302
  4. MEQUITAZINE [Concomitant]
     Dosage: DRUG REPORTED: HALEMUNIN
     Route: 048
     Dates: start: 20080226, end: 20080302
  5. CALONAL [Concomitant]
     Dosage: TAKEN AS NEEDED.
     Route: 048

REACTIONS (6)
  - ANXIETY [None]
  - HALLUCINATION [None]
  - IRRITABILITY [None]
  - NEUROLOGICAL SYMPTOM [None]
  - PANIC ATTACK [None]
  - SLEEP DISORDER [None]
